FAERS Safety Report 8978281 (Version 1)
Quarter: 2012Q4

REPORT INFORMATION
  Report Type: 
  Country: BR (occurrence: BR)
  Receive Date: 20121220
  Receipt Date: 20121220
  Transmission Date: 20130627
  Serious: Yes (Other)
  Sender: FDA-Public Use
  Company Number: BR-009507513-1212BRA007761

PATIENT
  Age: 44 Year
  Sex: Female
  Weight: 72 kg

DRUGS (4)
  1. ROCURONIUM BROMIDE [Suspect]
     Indication: INDUCTION OF ANAESTHESIA
     Route: 042
  2. MIDAZOLAM [Concomitant]
     Indication: INDUCTION OF ANAESTHESIA
  3. FENTANYL [Concomitant]
     Indication: INDUCTION OF ANAESTHESIA
  4. PROPOFOL [Concomitant]
     Indication: INDUCTION OF ANAESTHESIA

REACTIONS (5)
  - Ventricular extrasystoles [Recovered/Resolved]
  - Ventricular tachycardia [Recovered/Resolved]
  - Cardiac arrest [Recovered/Resolved]
  - Coronary artery disease [Unknown]
  - Coronary artery disease [Unknown]
